FAERS Safety Report 18610405 (Version 1)
Quarter: 2020Q4

REPORT INFORMATION
  Report Type: Spontaneous
  Country: JP (occurrence: JP)
  Receive Date: 20201214
  Receipt Date: 20201214
  Transmission Date: 20210114
  Serious: Yes (Hospitalization, Other)
  Sender: FDA-Public Use
  Company Number: JP-GLAXOSMITHKLINE-JP2020JPN242610

PATIENT
  Age: 82 Year
  Sex: Female

DRUGS (2)
  1. ARASENA A [Suspect]
     Active Substance: VIDARABINE
     Indication: MENINGOENCEPHALITIS HERPETIC
     Dosage: UNK
     Route: 065
  2. VALACICLOVIR [Suspect]
     Active Substance: VALACYCLOVIR HYDROCHLORIDE
     Indication: HERPES ZOSTER
     Dosage: UNK
     Route: 048

REACTIONS (10)
  - Meningoencephalitis herpetic [Unknown]
  - Hyperkalaemia [Unknown]
  - Platelet count decreased [Recovered/Resolved]
  - Altered state of consciousness [Recovering/Resolving]
  - Renal impairment [Unknown]
  - Urine output decreased [Unknown]
  - Anaemia [Recovered/Resolved]
  - Toxic encephalopathy [Unknown]
  - Bradycardia [Unknown]
  - Monoplegia [Unknown]
